FAERS Safety Report 9818356 (Version 2)
Quarter: 2014Q1

REPORT INFORMATION
  Report Type: Spontaneous
  Country: GB (occurrence: GB)
  Receive Date: 20140115
  Receipt Date: 20140124
  Transmission Date: 20141002
  Serious: Yes (Other)
  Sender: FDA-Public Use
  Company Number: GB-GE HEALTHCARE MEDICAL DIAGNOSTICS-MYVW-PR-1401S-0001

PATIENT
  Age: 66 Year
  Sex: Male
  Weight: 82 kg

DRUGS (12)
  1. MYOVIEW [Suspect]
     Indication: CHEST PAIN
     Route: 042
     Dates: start: 20131230, end: 20131230
  2. MYOVIEW [Suspect]
     Indication: MYOCARDIAL ISCHAEMIA
  3. MYOVIEW [Suspect]
     Indication: CORONARY ARTERY BYPASS
  4. MYOVIEW [Suspect]
     Indication: CARDIAC VALVE PROSTHESIS USER
  5. TECHNETIUM (TC99M) GENERATOR (MANF. UNKNOWN) [Concomitant]
  6. SIMVASTATIN [Concomitant]
  7. BISOPROLOL [Concomitant]
  8. WARFARIN [Concomitant]
  9. OMEPRAZOLE [Concomitant]
  10. VENTOLIN [Concomitant]
  11. PERINDOPRIL [Concomitant]
  12. ISOSORBIDE MONONITRATE [Concomitant]

REACTIONS (3)
  - Chest pain [Recovered/Resolved]
  - Pyrexia [Recovered/Resolved]
  - Vomiting [Recovered/Resolved]
